FAERS Safety Report 7242909-X (Version None)
Quarter: 2011Q1

REPORT INFORMATION
  Report Type: 
  Country: None (occurrence: None)
  Receive Date: 20110125
  Receipt Date: 20110113
  Transmission Date: 20110831
  Serious: Yes (Hospitalization, Other)
  Sender: FDA-Public Use
  Company Number: US-CELGENEUS-163-21880-11011492

PATIENT
  Sex: Male
  Weight: 81.64 kg

DRUGS (12)
  1. ATENOLOL [Concomitant]
     Indication: BLOOD PRESSURE
     Route: 065
  2. DEXAMETHASONE [Concomitant]
     Indication: MULTIPLE MYELOMA
     Route: 048
  3. SALINE SPRAY [Concomitant]
     Route: 065
  4. CITALOPRAM HYDROBROMIDE [Concomitant]
     Indication: DEPRESSION
     Route: 048
  5. REVLIMID [Suspect]
     Route: 048
     Dates: start: 20101201
  6. SPIRONOLACTONE [Concomitant]
     Route: 065
  7. PATANASE [Concomitant]
     Indication: COUGH
     Route: 065
  8. CITALOPRAM HYDROBROMIDE [Concomitant]
     Indication: ANXIETY
  9. PROMETHAZINE [Concomitant]
     Indication: COUGH
     Route: 065
  10. REVLIMID [Suspect]
     Indication: MULTIPLE MYELOMA
     Route: 048
     Dates: start: 20100903
  11. ASCORBIC ACID [Concomitant]
     Route: 048
  12. TAMSULOSIN HCL [Concomitant]
     Route: 048

REACTIONS (3)
  - PROSTATOMEGALY [None]
  - BLADDER CANCER [None]
  - RENAL FAILURE [None]
